FAERS Safety Report 18375689 (Version 1)
Quarter: 2020Q4

REPORT INFORMATION
  Report Type: Spontaneous
  Country: US (occurrence: US)
  Receive Date: 20201009
  Receipt Date: 20201009
  Transmission Date: 20210114
  Serious: Yes (Hospitalization)
  Sender: FDA-Public Use
  Company Number: None

PATIENT
  Age: 60 Year
  Sex: Male

DRUGS (12)
  1. SYMBICORT [Concomitant]
     Active Substance: BUDESONIDE\FORMOTEROL FUMARATE DIHYDRATE
  2. ALBUTEROL. [Concomitant]
     Active Substance: ALBUTEROL
  3. MUPIROCIN. [Concomitant]
     Active Substance: MUPIROCIN
  4. BENZONATATE. [Concomitant]
     Active Substance: BENZONATATE
  5. ELIQUIS [Concomitant]
     Active Substance: APIXABAN
  6. CARVEDILOL. [Concomitant]
     Active Substance: CARVEDILOL
  7. LISINOPRIL. [Concomitant]
     Active Substance: LISINOPRIL
  8. METHYLPRED [Concomitant]
     Active Substance: METHYLPREDNISOLONE
  9. PREDNISONE. [Concomitant]
     Active Substance: PREDNISONE
  10. TALTZ [Suspect]
     Active Substance: IXEKIZUMAB
     Indication: PSORIATIC ARTHROPATHY
     Dosage: ?          OTHER FREQUENCY:EVERY 4 WEEKS;?
     Route: 058
     Dates: start: 20200721
  11. EPINEPHRINE. [Concomitant]
     Active Substance: EPINEPHRINE
  12. AZITHROMYCIN ANHYDROUS. [Concomitant]
     Active Substance: AZITHROMYCIN ANHYDROUS

REACTIONS (4)
  - Multiple allergies [None]
  - Cardiac disorder [None]
  - Ejection fraction decreased [None]
  - Asthma [None]

NARRATIVE: CASE EVENT DATE: 20201003
